FAERS Safety Report 10227979 (Version 1)
Quarter: 2014Q2

REPORT INFORMATION
  Report Type: Spontaneous
  Country: CN (occurrence: CN)
  Receive Date: 20140610
  Receipt Date: 20140610
  Transmission Date: 20141212
  Serious: Yes (Hospitalization)
  Sender: FDA-Public Use
  Company Number: CN-ASTRAZENECA-2014SE40116

PATIENT
  Sex: Male
  Weight: 5 kg

DRUGS (5)
  1. BUDESONIDE [Suspect]
     Indication: RESPIRATORY DISORDER
     Route: 055
     Dates: start: 20120331, end: 20120412
  2. TERBUTALINE SULFATE [Suspect]
     Indication: RESPIRATORY DISORDER
     Route: 055
     Dates: start: 20120331, end: 20120412
  3. AMBROXOL [Suspect]
     Indication: SPUTUM ABNORMAL
     Route: 041
     Dates: start: 20120331, end: 20120412
  4. CEFTAZIDIME [Suspect]
     Indication: INFECTION
     Route: 042
     Dates: start: 20120331, end: 20120412
  5. IPRATROPIUM BROMIDE [Suspect]
     Indication: RESPIRATORY DISORDER
     Route: 055
     Dates: start: 20120331, end: 20120412

REACTIONS (1)
  - Granulocytopenia [Recovered/Resolved]
